FAERS Safety Report 5124083-9 (Version None)
Quarter: 2006Q4

REPORT INFORMATION
  Report Type: 
  Country: None (occurrence: None)
  Receive Date: 20061010
  Receipt Date: 20051117
  Transmission Date: 20070319
  Serious: No
  Sender: FDA-Public Use
  Company Number: US-BRISTOL-MYERS SQUIBB COMPANY-13185624

PATIENT
  Age: 74 Year
  Sex: Male
  Weight: 95 kg

DRUGS (9)
  1. AVAPRO [Suspect]
     Indication: HYPERTENSION
     Dosage: 150 MG DAILY STARTED APPROX. 3 MONTHS AGO, INCREASED TO 300 MG APPROX. ONE MONTH AGO
     Dates: start: 20050101
  2. HYDROCHLOROTHIAZDE TAB [Concomitant]
  3. HUMULIN N [Concomitant]
  4. FISH OIL [Concomitant]
  5. FLOMAX [Concomitant]
  6. MULTIVITAMIN [Concomitant]
  7. POTASSIUM [Concomitant]
  8. STARLIX [Concomitant]
  9. DEPAKOTE [Concomitant]

REACTIONS (1)
  - DYSGEUSIA [None]
